FAERS Safety Report 24557801 (Version 5)
Quarter: 2025Q3

REPORT INFORMATION
  Report Type: Report from Study
  Country: US (occurrence: US)
  Receive Date: 20241028
  Receipt Date: 20250815
  Transmission Date: 20251021
  Serious: No
  Sender: SUNOVION
  Company Number: US-SMPA-2024SPA004234AA

PATIENT
  Age: 80 Year
  Sex: Male

DRUGS (15)
  1. ORGOVYX [Suspect]
     Active Substance: RELUGOLIX
     Indication: Prostate cancer
     Dosage: 360 MG, SINGLE
     Route: 048
  2. ORGOVYX [Suspect]
     Active Substance: RELUGOLIX
     Dosage: 120 MG, QD
     Route: 048
  3. ABIRATERONE [Suspect]
     Active Substance: ABIRATERONE
     Indication: Product used for unknown indication
  4. PREDNISONE [Suspect]
     Active Substance: PREDNISONE
     Indication: Product used for unknown indication
  5. ATORVASTATIN CALCIUM [Concomitant]
     Active Substance: ATORVASTATIN CALCIUM
     Route: 048
  6. FUROSEMIDE [Concomitant]
     Active Substance: FUROSEMIDE
     Route: 048
  7. TUMS [Concomitant]
     Active Substance: CALCIUM CARBONATE
     Route: 048
  8. ACETAMINOPHEN [Concomitant]
     Active Substance: ACETAMINOPHEN
  9. VITAMIN E [Concomitant]
     Active Substance: .ALPHA.-TOCOPHEROL
     Route: 048
  10. TYLENOL [Concomitant]
     Active Substance: ACETAMINOPHEN
  11. AMLODIPINE [Concomitant]
     Active Substance: AMLODIPINE BESYLATE
     Route: 048
  12. VITAMINS [Concomitant]
     Active Substance: VITAMINS
     Route: 048
  13. LASIX [Concomitant]
     Active Substance: FUROSEMIDE
  14. LOSARTAN [Concomitant]
     Active Substance: LOSARTAN
     Route: 048
  15. SENNA AND DOCUSATE SODIUM [Concomitant]
     Active Substance: DOCUSATE SODIUM\SENNOSIDES
     Route: 048

REACTIONS (7)
  - Decreased appetite [Unknown]
  - Pain [Unknown]
  - Faeces hard [Unknown]
  - Bowel movement irregularity [Unknown]
  - Abdominal discomfort [Unknown]
  - Hot flush [Unknown]
  - Asthenia [Unknown]
